FAERS Safety Report 23486968 (Version 1)
Quarter: 2024Q1

REPORT INFORMATION
  Report Type: Spontaneous
  Country: JP (occurrence: JP)
  Receive Date: 20240206
  Receipt Date: 20240206
  Transmission Date: 20240410
  Serious: Yes (Other)
  Sender: FDA-Public Use
  Company Number: JP-BAYER-2024A018143

PATIENT
  Sex: Male

DRUGS (3)
  1. XOFIGO [Suspect]
     Active Substance: RADIUM RA-223 DICHLORIDE
     Indication: Prostate cancer
     Dosage: UNK
     Route: 042
     Dates: start: 20231211
  2. XTANDI [Suspect]
     Active Substance: ENZALUTAMIDE
  3. DENOSUMAB [Concomitant]
     Active Substance: DENOSUMAB

REACTIONS (1)
  - Rash [Recovered/Resolved]
